FAERS Safety Report 13532478 (Version 3)
Quarter: 2017Q4

REPORT INFORMATION
  Report Type: Report from Study
  Country: CA (occurrence: CA)
  Receive Date: 20170510
  Receipt Date: 20171128
  Transmission Date: 20180320
  Serious: Yes (Other)
  Sender: FDA-Public Use
  Company Number: CA-UCBSA-2017017552

PATIENT
  Age: 62 Year
  Sex: Female
  Weight: 79 kg

DRUGS (4)
  1. CERTOLIZUMAB PEGOL RA [Suspect]
     Active Substance: CERTOLIZUMAB PEGOL
     Dosage: 200 MG, EVERY 10 DAYS
     Route: 058
     Dates: start: 20161013, end: 20170422
  2. CERTOLIZUMAB PEGOL RA [Suspect]
     Active Substance: CERTOLIZUMAB PEGOL
     Indication: RHEUMATOID ARTHRITIS
     Dosage: 400 MG, EV 2 WEEKS(QOW)
     Route: 058
     Dates: start: 20150114, end: 20150211
  3. CERTOLIZUMAB PEGOL RA [Suspect]
     Active Substance: CERTOLIZUMAB PEGOL
     Dosage: 200 MG, EV 2 WEEKS(QOW)
     Route: 058
     Dates: start: 20150225, end: 20161013
  4. CERTOLIZUMAB PEGOL RA [Suspect]
     Active Substance: CERTOLIZUMAB PEGOL
     Dosage: 200 MG EVERY 10 DAYS
     Route: 058
     Dates: start: 2017, end: 201710

REACTIONS (2)
  - Off label use [Unknown]
  - Tooth abscess [Recovered/Resolved]

NARRATIVE: CASE EVENT DATE: 20161013
